FAERS Safety Report 6538238-X (Version None)
Quarter: 2010Q1

REPORT INFORMATION
  Report Type: 
  Country: None (occurrence: None)
  Receive Date: 20100114
  Receipt Date: 20100105
  Transmission Date: 20100710
  Serious: Yes (Hospitalization, Other)
  Sender: FDA-Public Use
  Company Number: US-ABBOTT-10P-163-0617970-00

PATIENT
  Sex: Male
  Weight: 68.1 kg

DRUGS (12)
  1. HUMIRA [Suspect]
     Indication: RHEUMATOID ARTHRITIS
     Dates: start: 20070601, end: 20080716
  2. HUMIRA [Suspect]
     Dates: start: 20081230
  3. HUMIRA [Suspect]
     Dates: start: 20090301
  4. CELEBREX [Concomitant]
     Indication: DRUG USE FOR UNKNOWN INDICATION
  5. MIRAPEX [Concomitant]
     Indication: RESTLESS LEGS SYNDROME
  6. TRAMADOL [Concomitant]
     Indication: DRUG USE FOR UNKNOWN INDICATION
  7. PROTONIX [Concomitant]
     Indication: DRUG USE FOR UNKNOWN INDICATION
  8. COUMADIN [Concomitant]
     Indication: DRUG USE FOR UNKNOWN INDICATION
  9. LIPITOR [Concomitant]
     Indication: DRUG USE FOR UNKNOWN INDICATION
  10. VITAMIN B-12 [Concomitant]
     Indication: DRUG USE FOR UNKNOWN INDICATION
  11. CALCIUM [Concomitant]
     Indication: DRUG USE FOR UNKNOWN INDICATION
  12. VITAMIN C [Concomitant]
     Indication: DRUG USE FOR UNKNOWN INDICATION

REACTIONS (5)
  - DRUG INEFFECTIVE [None]
  - INTESTINAL PERFORATION [None]
  - PULMONARY THROMBOSIS [None]
  - STAPHYLOCOCCAL INFECTION [None]
  - THROMBOSIS [None]
